FAERS Safety Report 14858289 (Version 1)
Quarter: 2018Q2

REPORT INFORMATION
  Report Type: Report from Study
  Country: None (occurrence: GB)
  Receive Date: 20180508
  Receipt Date: 20180508
  Transmission Date: 20180711
  Serious: Yes (Hospitalization, Other)
  Sender: FDA-Public Use
  Company Number: GB-ABBVIE-18K-167-2285711-00

PATIENT
  Age: 70 Year
  Sex: Male

DRUGS (2)
  1. METHOTREXATE. [Concomitant]
     Active Substance: METHOTREXATE
     Indication: RHEUMATOID ARTHRITIS
  2. HUMIRA [Suspect]
     Active Substance: ADALIMUMAB
     Indication: RHEUMATOID ARTHRITIS
     Route: 058
     Dates: start: 20150210

REACTIONS (6)
  - Rash pruritic [Unknown]
  - Acute kidney injury [Unknown]
  - Sepsis [Unknown]
  - Productive cough [Unknown]
  - Chronic kidney disease [Unknown]
  - Device related infection [Unknown]

NARRATIVE: CASE EVENT DATE: 20171208
